FAERS Safety Report 16291947 (Version 2)
Quarter: 2020Q3

REPORT INFORMATION
  Report Type: Spontaneous
  Country: US (occurrence: US)
  Receive Date: 20190509
  Receipt Date: 20200821
  Transmission Date: 20201102
  Serious: No
  Sender: FDA-Public Use
  Company Number: US-PFIZER INC-2019199064

PATIENT
  Age: 60 Year
  Sex: Female

DRUGS (1)
  1. IBRANCE [Suspect]
     Active Substance: PALBOCICLIB
     Dosage: 125 MG, CYCLIC (125MGX21DAYS,7DAYS OFF)
     Route: 048

REACTIONS (5)
  - Acne [Unknown]
  - Pain [Unknown]
  - Mobility decreased [Unknown]
  - Skin fissures [Unknown]
  - Dry skin [Unknown]
